FAERS Safety Report 16588389 (Version 2)
Quarter: 2019Q3

REPORT INFORMATION
  Report Type: Spontaneous
  Country: FR (occurrence: FR)
  Receive Date: 20190717
  Receipt Date: 20190729
  Transmission Date: 20191004
  Serious: Yes (Hospitalization, Other)
  Sender: FDA-Public Use
  Company Number: FR-BEH-2019104538

PATIENT
  Age: 28 Year
  Sex: Female

DRUGS (1)
  1. PRIVIGEN [Suspect]
     Active Substance: HUMAN IMMUNOGLOBULIN G
     Indication: ALLOIMMUNISATION
     Dosage: 70 GRAM, TOT
     Route: 041
     Dates: start: 20190627, end: 20190627

REACTIONS (3)
  - Product use in unapproved indication [Unknown]
  - Meningitis aseptic [Recovering/Resolving]
  - No adverse event [Unknown]

NARRATIVE: CASE EVENT DATE: 20190628
